FAERS Safety Report 21303916 (Version 1)
Quarter: 2022Q3

REPORT INFORMATION
  Report Type: Spontaneous
  Country: US (occurrence: US)
  Receive Date: 20220907
  Receipt Date: 20220907
  Transmission Date: 20221027
  Serious: Yes (Other)
  Sender: FDA-Public Use
  Company Number: US-BRISTOL-MYERS SQUIBB COMPANY-2022-098940

PATIENT
  Age: 79 Year
  Sex: Female
  Weight: 88.45 kg

DRUGS (8)
  1. REVLIMID [Suspect]
     Active Substance: LENALIDOMIDE
     Indication: Plasma cell myeloma
     Dosage: DOSE: UNAVAILABLE FREQ : DAILY FOR 21 DAYS WITH A 7 DAY BREAK
     Route: 048
     Dates: start: 201610
  2. REVLIMID [Suspect]
     Active Substance: LENALIDOMIDE
     Dosage: FREQ: 21 DAYS 7 DAYS OFF
     Route: 048
  3. REVLIMID [Suspect]
     Active Substance: LENALIDOMIDE
     Dosage: FREQ: 21 DAYS AND 7 DAYS OFF
     Route: 048
  4. LOSARTAN [Concomitant]
     Active Substance: LOSARTAN
  5. ZOLOFT [Concomitant]
     Active Substance: SERTRALINE HYDROCHLORIDE
  6. ASPIRIN [Concomitant]
     Active Substance: ASPIRIN
  7. SIMVASTATIN [Concomitant]
     Active Substance: SIMVASTATIN
  8. ACYCLOVIR [Concomitant]
     Active Substance: ACYCLOVIR

REACTIONS (2)
  - White blood cell count decreased [Unknown]
  - Plasma cell myeloma refractory [Unknown]
